FAERS Safety Report 11090863 (Version 1)
Quarter: 2015Q2

REPORT INFORMATION
  Report Type: Spontaneous
  Country: US (occurrence: None)
  Receive Date: 20150504
  Receipt Date: 20150504
  Transmission Date: 20150821
  Serious: Yes (Hospitalization)
  Sender: FDA-Public Use
  Company Number: None

PATIENT
  Age: 64 Year
  Sex: Female

DRUGS (1)
  1. CANAGLIFLOZIN [Suspect]
     Active Substance: CANAGLIFLOZIN
     Indication: TYPE 2 DIABETES MELLITUS
     Dosage: 1
     Route: 048
     Dates: start: 20141229, end: 20150415

REACTIONS (9)
  - Malaise [None]
  - Procedural nausea [None]
  - Blood glucose increased [None]
  - Metabolic acidosis [None]
  - Blood ketone body increased [None]
  - Procedural pain [None]
  - Weight decreased [None]
  - Anion gap increased [None]
  - Carbon dioxide abnormal [None]

NARRATIVE: CASE EVENT DATE: 20150418
